FAERS Safety Report 6194680-0 (Version None)
Quarter: 2009Q2

REPORT INFORMATION
  Report Type: 
  Country: None (occurrence: None)
  Receive Date: 20090519
  Receipt Date: 20090512
  Transmission Date: 20091009
  Serious: Yes (Other)
  Sender: FDA-Public Use
  Company Number: US-BAYER-200910347BCC

PATIENT
  Age: 84 Year
  Sex: Female
  Weight: 54 kg

DRUGS (8)
  1. ALEVE [Suspect]
     Indication: ARTHRALGIA
     Dosage: TOTAL DAILY DOSE: 220 MG  UNIT DOSE: 220 MG
     Route: 048
  2. DIOVAN HCT [Concomitant]
  3. LOVASTATIN [Concomitant]
  4. KLOR-CON [Concomitant]
     Indication: MINERAL SUPPLEMENTATION
  5. AMLODIPINE [Concomitant]
  6. ASPIRIN [Concomitant]
  7. FOSAMAX [Concomitant]
  8. ALENDRONATE SODIUM [Concomitant]

REACTIONS (5)
  - BLOOD PRESSURE SYSTOLIC DECREASED [None]
  - LOSS OF CONSCIOUSNESS [None]
  - SHOCK [None]
  - VERTIGO [None]
  - VISION BLURRED [None]
